FAERS Safety Report 5237000-8 (Version None)
Quarter: 2007Q1

REPORT INFORMATION
  Report Type: 
  Country: None (occurrence: None)
  Receive Date: 20070213
  Receipt Date: 20070202
  Transmission Date: 20070707
  Serious: Yes (Other)
  Sender: FDA-Public Use
  Company Number: US-ROCHE-481104

PATIENT
  Age: 54 Year
  Sex: Male

DRUGS (2)
  1. PEGASYS [Suspect]
     Indication: HEPATITIS C
     Route: 065
     Dates: start: 20061215, end: 20070126
  2. COPEGUS [Suspect]
     Indication: HEPATITIS C
     Route: 065
     Dates: start: 20061215, end: 20070126

REACTIONS (1)
  - RETINAL DETACHMENT [None]
